FAERS Safety Report 18959834 (Version 1)
Quarter: 2021Q1

REPORT INFORMATION
  Report Type: Spontaneous
  Country: DE (occurrence: DE)
  Receive Date: 20210303
  Receipt Date: 20210303
  Transmission Date: 20210420
  Serious: Yes (Other)
  Sender: FDA-Public Use
  Company Number: DE-SA-2021SA068606

PATIENT
  Sex: Female

DRUGS (2)
  1. AUBAGIO [Suspect]
     Active Substance: TERIFLUNOMIDE
     Dosage: UNK
     Dates: start: 2015
  2. AUBAGIO [Suspect]
     Active Substance: TERIFLUNOMIDE
     Dosage: UNK UNK, QOD
     Dates: start: 2019

REACTIONS (4)
  - Product use issue [Unknown]
  - Colitis microscopic [Unknown]
  - Diarrhoea [Unknown]
  - Urticaria [Unknown]

NARRATIVE: CASE EVENT DATE: 2019
